FAERS Safety Report 10266146 (Version 1)
Quarter: 2014Q2

REPORT INFORMATION
  Report Type: Spontaneous
  Country: US (occurrence: US)
  Receive Date: 20140627
  Receipt Date: 20140627
  Transmission Date: 20141212
  Serious: Yes (Life-Threatening)
  Sender: FDA-Public Use
  Company Number: CHPA2014US008779

PATIENT
  Age: 69 Year
  Sex: Female

DRUGS (11)
  1. VOLTAREN GEL [Suspect]
     Indication: PAIN
     Dosage: 4 G, TID
     Route: 061
     Dates: start: 20140620
  2. VOLTAREN GEL [Suspect]
     Indication: MUSCLE STRAIN
  3. VOLTAREN GEL [Suspect]
     Indication: OFF LABEL USE
  4. VERAPAMIL [Concomitant]
     Indication: BLOOD PRESSURE
  5. URSO FORTE [Concomitant]
     Indication: BILIARY FIBROSIS
  6. OXYCODON [Concomitant]
     Indication: PAIN
     Dosage: 1-2DF, Q6H
  7. LISINOPRIL [Concomitant]
     Indication: HYPERTENSION
  8. NEXIUM//ESOMEPRAZOLE SODIUM [Concomitant]
     Indication: GASTROOESOPHAGEAL REFLUX DISEASE
  9. ATENOLOL [Concomitant]
     Indication: HYPERTENSION
  10. ROBAXIN [Concomitant]
     Indication: MUSCLE SPASMS
  11. ZETIA [Concomitant]
     Indication: BLOOD CHOLESTEROL INCREASED

REACTIONS (7)
  - Feeling abnormal [Unknown]
  - Headache [Not Recovered/Not Resolved]
  - Fatigue [Not Recovered/Not Resolved]
  - Nausea [Recovered/Resolved]
  - Vomiting [Recovered/Resolved]
  - Asthenia [Recovered/Resolved]
  - Diarrhoea [Recovered/Resolved]
